FAERS Safety Report 5140812-2 (Version None)
Quarter: 2006Q4

REPORT INFORMATION
  Report Type: 
  Country: None (occurrence: None)
  Receive Date: 20061026
  Receipt Date: 20061017
  Transmission Date: 20070319
  Serious: Yes (Other)
  Sender: FDA-Public Use
  Company Number: 2006127519

PATIENT
  Age: 81 Year
  Sex: Female

DRUGS (1)
  1. ATARAX [Suspect]
     Indication: RESTLESSNESS

REACTIONS (1)
  - RESPIRATORY DEPRESSION [None]
